FAERS Safety Report 10987353 (Version 2)
Quarter: 2015Q2

REPORT INFORMATION
  Report Type: Spontaneous
  Country: US (occurrence: US)
  Receive Date: 20150404
  Receipt Date: 20150525
  Transmission Date: 20150821
  Serious: No
  Sender: FDA-Public Use
  Company Number: US-JNJFOC-20141106409

PATIENT
  Sex: Female
  Weight: 63.96 kg

DRUGS (1)
  1. REMICADE [Suspect]
     Active Substance: INFLIXIMAB
     Indication: CROHN^S DISEASE
     Dosage: STARTED 10 PLUS YEARS PRIOR TO THE REPORT.??FREQUENCY: EVERY 6-8 WEEKS
     Route: 042
     Dates: end: 20140723

REACTIONS (3)
  - Arthropathy [Unknown]
  - Crohn^s disease [Not Recovered/Not Resolved]
  - Exposure during pregnancy [Recovered/Resolved]

NARRATIVE: CASE EVENT DATE: 2014
